FAERS Safety Report 12199084 (Version 2)
Quarter: 2017Q2

REPORT INFORMATION
  Report Type: Spontaneous
  Country: FR (occurrence: FR)
  Receive Date: 20160322
  Receipt Date: 20170519
  Transmission Date: 20170830
  Serious: Yes (Hospitalization)
  Sender: FDA-Public Use
  Company Number: FR-SUN PHARMACEUTICAL INDUSTRIES LTD-2016R1-113341

PATIENT
  Age: 7 Year
  Sex: Female

DRUGS (1)
  1. FLUISEDAL [Suspect]
     Active Substance: MEGLUMINE BENZOATE\PROMETHAZINE HYDROCHLORIDE
     Indication: ANTITUSSIVE THERAPY
     Route: 065

REACTIONS (7)
  - Toxicity to various agents [Unknown]
  - Pyrexia [Unknown]
  - Encephalitis [Unknown]
  - Hallucination, visual [Unknown]
  - Agitation [Unknown]
  - Hallucination, tactile [Unknown]
  - Drug administered to patient of inappropriate age [None]
